FAERS Safety Report 17208517 (Version 2)
Quarter: 2020Q1

REPORT INFORMATION
  Report Type: Spontaneous
  Country: US (occurrence: US)
  Receive Date: 20191227
  Receipt Date: 20200102
  Transmission Date: 20200409
  Serious: Yes (Other)
  Sender: FDA-Public Use
  Company Number: US-PFIZER INC-2019552125

PATIENT
  Age: 36 Month
  Sex: Female

DRUGS (2)
  1. PROPANOLOL HCL [Suspect]
     Active Substance: PROPRANOLOL HYDROCHLORIDE
     Dosage: 1 MG/KG, 1X/DAY (REDUCED)
     Route: 048
  2. PROPANOLOL HCL [Suspect]
     Active Substance: PROPRANOLOL HYDROCHLORIDE
     Indication: INFANTILE HAEMANGIOMA
     Dosage: DAILY (1-2 MG/KG/DAY)
     Route: 048

REACTIONS (5)
  - Condition aggravated [Unknown]
  - Respiratory disorder [Unknown]
  - Cardiac disorder [Unknown]
  - Product use in unapproved indication [Unknown]
  - Off label use [Unknown]
